FAERS Safety Report 7286882-7 (Version None)
Quarter: 2011Q1

REPORT INFORMATION
  Report Type: 
  Country: None (occurrence: None)
  Receive Date: 20110211
  Receipt Date: 20110202
  Transmission Date: 20110831
  Serious: Yes (Hospitalization)
  Sender: FDA-Public Use
  Company Number: US-BIOGENIDEC-2010BI023758

PATIENT
  Age: 36 Year
  Sex: Female

DRUGS (1)
  1. TYSABRI [Suspect]
     Indication: MULTIPLE SCLEROSIS
     Route: 042
     Dates: start: 20100412, end: 20100607

REACTIONS (13)
  - EPSTEIN-BARR VIRUS INFECTION [None]
  - IMMUNODEFICIENCY COMMON VARIABLE [None]
  - ARTHRALGIA [None]
  - BRONCHIECTASIS [None]
  - SEPTIC SHOCK [None]
  - ACUTE RESPIRATORY DISTRESS SYNDROME [None]
  - ADENOVIRUS INFECTION [None]
  - HEADACHE [None]
  - PAIN [None]
  - INFECTION [None]
  - OROPHARYNGEAL CANDIDIASIS [None]
  - JOINT SWELLING [None]
  - FATIGUE [None]
